FAERS Safety Report 7743817-8 (Version None)
Quarter: 2011Q3

REPORT INFORMATION
  Report Type: 
  Country: None (occurrence: None)
  Receive Date: 20110912
  Receipt Date: 20110831
  Transmission Date: 20111222
  Serious: Yes (Death, Hospitalization)
  Sender: FDA-Public Use
  Company Number: US-GLAXOSMITHKLINE-A0896863A

PATIENT
  Age: 58 Year
  Sex: Male
  Weight: 111.8 kg

DRUGS (12)
  1. ATENOLOL [Concomitant]
  2. ASPIRIN [Concomitant]
  3. GEMFIBROZIL [Concomitant]
  4. PAXIL [Concomitant]
  5. NITROGLYCERIN [Concomitant]
  6. ALLOPURINOL [Concomitant]
  7. VOLTAREN [Concomitant]
  8. SYNTHROID [Concomitant]
  9. FLOMAX [Concomitant]
  10. INSULIN [Concomitant]
  11. AVANDIA [Suspect]
     Indication: DIABETES MELLITUS
     Dosage: 8MG PER DAY
     Route: 048
     Dates: start: 19990920, end: 19991001
  12. NORVASC [Concomitant]

REACTIONS (2)
  - CARDIOVASCULAR DISORDER [None]
  - CARDIAC FAILURE CONGESTIVE [None]
